FAERS Safety Report 4590014-3 (Version None)
Quarter: 2005Q1

REPORT INFORMATION
  Report Type: 
  Country: None (occurrence: None)
  Receive Date: 20050217
  Receipt Date: 20050203
  Transmission Date: 20050727
  Serious: Yes (Death, Life-Threatening, Hospitalization)
  Sender: FDA-Public Use
  Company Number: 2004AP05470

PATIENT
  Age: 25 Year
  Sex: Female
  Weight: 45 kg

DRUGS (11)
  1. SEROQUEL [Suspect]
     Indication: SCHIZOPHRENIA
     Dosage: 100 MG TID PO
     Route: 048
     Dates: start: 20040923, end: 20040924
  2. TEGRETOL [Suspect]
     Indication: SCHIZOPHRENIA
     Dosage: 100 MG TID PO
     Route: 048
     Dates: start: 20040708, end: 20040723
  3. HORIZON [Suspect]
     Indication: SCHIZOPHRENIA
     Dosage: 5 MG QID PO
     Route: 048
     Dates: start: 20040726, end: 20040924
  4. SILECE [Suspect]
     Indication: SCHIZOPHRENIA
     Dosage: 2 MG BID PO
     Route: 048
     Dates: start: 20040708, end: 20040924
  5. HIRNAMIN [Suspect]
     Indication: SCHIZOPHRENIA
     Dosage: 5 MG TID PO
     Route: 048
     Dates: start: 20040708, end: 20040723
  6. VITAMIN A [Suspect]
     Indication: SCHIZOPHRENIA
     Dates: start: 20040708, end: 20040924
  7. RISPERDAL [Suspect]
     Indication: SCHIZOPHRENIA
     Dosage: 2 MG TID PO
     Route: 048
     Dates: start: 20040708, end: 20040723
  8. DOGMATYL [Suspect]
     Indication: SCHIZOPHRENIA
     Dosage: 100 ,G TID PO
     Route: 048
     Dates: start: 20040805, end: 20040723
  9. DEPAKENE [Suspect]
     Indication: MANIA
     Dosage: 200 MG TID PO
     Route: 048
     Dates: start: 20040708, end: 20040723
  10. GLYCYRON [Concomitant]
  11. DASEN [Concomitant]

REACTIONS (10)
  - ASCITES [None]
  - CARDIAC DISORDER [None]
  - CONDITION AGGRAVATED [None]
  - HEPATIC FUNCTION ABNORMAL [None]
  - HEPATITIS ACUTE [None]
  - MENTAL DISORDER [None]
  - MULTI-ORGAN FAILURE [None]
  - NEUROLEPTIC MALIGNANT SYNDROME [None]
  - PNEUMONIA BACTERIAL [None]
  - PSYCHOSOMATIC DISEASE [None]
